FAERS Safety Report 24312455 (Version 1)
Quarter: 2024Q3

REPORT INFORMATION
  Report Type: Spontaneous
  Country: CN (occurrence: CN)
  Receive Date: 20240912
  Receipt Date: 20240912
  Transmission Date: 20241016
  Serious: Yes (Other)
  Sender: ELI LILLY AND CO
  Company Number: CN-ELI_LILLY_AND_COMPANY-CN202409002246

PATIENT
  Age: 61 Year
  Sex: Female
  Weight: 62 kg

DRUGS (2)
  1. GEMCITABINE HYDROCHLORIDE [Suspect]
     Active Substance: GEMCITABINE HYDROCHLORIDE
     Indication: Chemotherapy
     Dosage: 1200 MG, CYCLICAL (ONCE IN 7 DAYS)
     Route: 041
     Dates: start: 20240821, end: 20240821
  2. PACLITAXEL [Suspect]
     Active Substance: PACLITAXEL
     Indication: Chemotherapy
     Dosage: 150 MG, CYCLICAL (ONCE 7 DAYS)
     Route: 041
     Dates: start: 20240821, end: 20240821

REACTIONS (2)
  - Myelosuppression [Not Recovered/Not Resolved]
  - Body temperature increased [Unknown]
